FAERS Safety Report 6201987-7 (Version None)
Quarter: 2009Q2

REPORT INFORMATION
  Report Type: 
  Country: None (occurrence: None)
  Receive Date: 20090526
  Receipt Date: 20090515
  Transmission Date: 20091009
  Serious: Yes (Hospitalization, Disabling, Other)
  Sender: FDA-Public Use
  Company Number: A0785644A

PATIENT
  Age: 40 Year
  Sex: Male

DRUGS (2)
  1. EPZICOM [Suspect]
     Indication: HIV INFECTION
     Dosage: 1TAB PER DAY
     Route: 048
  2. ISENTRESS [Concomitant]
     Dosage: 4MG TWICE PER DAY

REACTIONS (3)
  - DYSPNOEA [None]
  - FLUID RETENTION [None]
  - VIRAL CARDIOMYOPATHY [None]
